FAERS Safety Report 13771572 (Version 1)
Quarter: 2017Q3

REPORT INFORMATION
  Report Type: Report from Study
  Country: None (occurrence: US)
  Receive Date: 20170720
  Receipt Date: 20170720
  Transmission Date: 20171127
  Serious: Yes (Other)
  Sender: FDA-Public Use
  Company Number: US-ABBVIE-12P-163-0899557-00

PATIENT
  Age: 60 Year
  Sex: Male

DRUGS (4)
  1. HUMIRA [Suspect]
     Active Substance: ADALIMUMAB
     Indication: PRODUCT USED FOR UNKNOWN INDICATION
     Route: 058
     Dates: start: 201105
  2. LORAZEPAM. [Suspect]
     Active Substance: LORAZEPAM
     Indication: PRODUCT USED FOR UNKNOWN INDICATION
     Route: 065
  3. MELATONIN [Suspect]
     Active Substance: MELATONIN
     Indication: PRODUCT USED FOR UNKNOWN INDICATION
     Route: 065
  4. VIAGRA [Suspect]
     Active Substance: SILDENAFIL CITRATE
     Indication: PRODUCT USED FOR UNKNOWN INDICATION
     Route: 065
     Dates: start: 20170214

REACTIONS (8)
  - Tinnitus [Not Recovered/Not Resolved]
  - Dyschromatopsia [Unknown]
  - Deafness [Unknown]
  - Insomnia [Unknown]
  - Vision blurred [Unknown]
  - Visual brightness [Recovering/Resolving]
  - Panic attack [Unknown]
  - Extrasystoles [Unknown]

NARRATIVE: CASE EVENT DATE: 20170214
